FAERS Safety Report 21077089 (Version 2)
Quarter: 2022Q3

REPORT INFORMATION
  Report Type: Spontaneous
  Country: JP (occurrence: JP)
  Receive Date: 20220713
  Receipt Date: 20220808
  Transmission Date: 20221026
  Serious: Yes (Other)
  Sender: FDA-Public Use
  Company Number: JP-JNJFOC-20220720506

PATIENT
  Age: 86 Year
  Sex: Male

DRUGS (1)
  1. ERLEADA [Suspect]
     Active Substance: APALUTAMIDE
     Indication: Prostate cancer
     Dosage: AFTER BREAKFAST
     Route: 048
     Dates: start: 20200901, end: 20200925

REACTIONS (5)
  - Hypokalaemia [Unknown]
  - Decreased appetite [Unknown]
  - Nausea [Unknown]
  - Anaemia [Unknown]
  - Vomiting [Unknown]

NARRATIVE: CASE EVENT DATE: 20200901
